FAERS Safety Report 25582960 (Version 1)
Quarter: 2025Q3

REPORT INFORMATION
  Report Type: Spontaneous
  Country: US (occurrence: US)
  Receive Date: 20250721
  Receipt Date: 20250721
  Transmission Date: 20251021
  Serious: No
  Sender: ROCHE
  Company Number: US-ROCHE-10000335979

PATIENT
  Age: 36 Year
  Sex: Female
  Weight: 81.64 kg

DRUGS (2)
  1. OCREVUS [Suspect]
     Active Substance: OCRELIZUMAB
     Indication: Relapsing-remitting multiple sclerosis
     Dosage: SOLUTION
     Route: 042
     Dates: start: 202209
  2. BACLOFEN [Concomitant]
     Active Substance: BACLOFEN

REACTIONS (2)
  - Depression [Recovered/Resolved]
  - Malaise [Unknown]

NARRATIVE: CASE EVENT DATE: 20250501
